FAERS Safety Report 25679478 (Version 1)
Quarter: 2025Q3

REPORT INFORMATION
  Report Type: Spontaneous
  Country: JP (occurrence: JP)
  Receive Date: 20250814
  Receipt Date: 20250814
  Transmission Date: 20251020
  Serious: Yes (Other)
  Sender: STRIDES
  Company Number: JP-STRIDES ARCOLAB LIMITED-2025SP010117

PATIENT
  Age: 54 Year

DRUGS (10)
  1. PREDNISOLONE [Suspect]
     Active Substance: PREDNISOLONE
     Indication: Lung squamous cell carcinoma stage III
     Route: 065
     Dates: start: 2017
  2. DOCETAXEL [Suspect]
     Active Substance: DOCETAXEL
     Indication: Lung squamous cell carcinoma stage III
     Route: 065
     Dates: start: 201710, end: 2017
  3. DOCETAXEL [Suspect]
     Active Substance: DOCETAXEL
     Route: 065
     Dates: start: 201711
  4. RAMUCIRUMAB [Suspect]
     Active Substance: RAMUCIRUMAB
     Indication: Lung squamous cell carcinoma stage III
     Route: 065
     Dates: start: 201711
  5. TS-1 [Suspect]
     Active Substance: GIMERACIL\OTERACIL POTASSIUM\TEGAFUR
     Route: 065
     Dates: start: 201903
  6. CARBOPLATIN [Suspect]
     Active Substance: CARBOPLATIN
     Indication: Lung squamous cell carcinoma stage III
     Route: 065
     Dates: start: 201911
  7. PACLITAXEL [Suspect]
     Active Substance: PACLITAXEL
     Indication: Lung squamous cell carcinoma stage III
     Route: 065
     Dates: start: 201911
  8. CISPLATIN [Suspect]
     Active Substance: CISPLATIN
     Indication: Lung squamous cell carcinoma stage III
     Route: 065
     Dates: start: 202102
  9. VINORELBINE [Suspect]
     Active Substance: VINORELBINE TARTRATE
     Indication: Lung squamous cell carcinoma stage III
     Route: 065
     Dates: start: 202102
  10. NIVOLUMAB [Concomitant]
     Active Substance: NIVOLUMAB
     Indication: Lung squamous cell carcinoma stage III
     Route: 065
     Dates: start: 201709

REACTIONS (3)
  - Metastases to lymph nodes [Unknown]
  - Treatment failure [Unknown]
  - Off label use [Unknown]
